FAERS Safety Report 6111090-2 (Version None)
Quarter: 2009Q1

REPORT INFORMATION
  Report Type: 
  Country: None (occurrence: None)
  Receive Date: 20090309
  Receipt Date: 20090309
  Transmission Date: 20090719
  Serious: Yes (Hospitalization, Other)
  Sender: FDA-Public Use
  Company Number: None

PATIENT
  Age: 56 Year
  Sex: Female
  Weight: 72.5755 kg

DRUGS (1)
  1. ETHEX - POTASSIUM 10 MEQ ETHEX [Suspect]
     Indication: SUPPLEMENTATION THERAPY

REACTIONS (2)
  - BLOOD POTASSIUM DECREASED [None]
  - PRODUCT QUALITY ISSUE [None]
